FAERS Safety Report 23559388 (Version 1)
Quarter: 2024Q1

REPORT INFORMATION
  Report Type: Spontaneous
  Country: US (occurrence: None)
  Receive Date: 20240223
  Receipt Date: 20240223
  Transmission Date: 20240410
  Serious: Yes (Hospitalization)
  Sender: FDA-Public Use
  Company Number: None

PATIENT
  Age: 34 Year
  Sex: Male

DRUGS (6)
  1. TIVICAY [Suspect]
     Active Substance: DOLUTEGRAVIR SODIUM
     Dosage: FREQUENCY : DAILY;?
     Route: 048
  2. EMTRICITABINE\TENOFOVIR [Suspect]
     Active Substance: EMTRICITABINE\TENOFOVIR
     Dosage: FREQUENCY : DAILY;?
     Route: 048
  3. Ethambutol 400 mg tablet [Concomitant]
  4. Azithromycin 500 mg tablet [Concomitant]
  5. Rifabutin 150 mg capsule [Concomitant]
  6. Sulfamethoxazole-TMP DS tablet  800-160mg [Concomitant]

REACTIONS (1)
  - Hospitalisation [None]

NARRATIVE: CASE EVENT DATE: 20240222
